APPROVED DRUG PRODUCT: VENLAFAXINE HYDROCHLORIDE
Active Ingredient: VENLAFAXINE HYDROCHLORIDE
Strength: EQ 37.5MG BASE
Dosage Form/Route: TABLET;ORAL
Application: A090555 | Product #002 | TE Code: AB
Applicant: AUROBINDO PHARMA LTD
Approved: Apr 7, 2010 | RLD: No | RS: No | Type: RX